FAERS Safety Report 4726398-2 (Version None)
Quarter: 2005Q3

REPORT INFORMATION
  Report Type: 
  Country: None (occurrence: None)
  Receive Date: 20050726
  Receipt Date: 20050706
  Transmission Date: 20060218
  Serious: Yes (Other)
  Sender: FDA-Public Use
  Company Number: SGB1-2005-00339

PATIENT
  Sex: Male

DRUGS (1)
  1. XAGRID UNK(ANAGRELID HYDROCHLORIDE) CAPSULE [Suspect]

REACTIONS (1)
  - HAEMOLYTIC ANAEMIA [None]
